FAERS Safety Report 14186476 (Version 1)
Quarter: 2017Q4

REPORT INFORMATION
  Report Type: Spontaneous
  Country: US (occurrence: US)
  Receive Date: 20171114
  Receipt Date: 20171114
  Transmission Date: 20180321
  Serious: Yes (Other)
  Sender: FDA-Public Use
  Company Number: US-THE MEDICINES COMPANY-US-MDCO-17-00519

PATIENT
  Sex: Female

DRUGS (1)
  1. ORBACTIV [Suspect]
     Active Substance: ORITAVANCIN
     Indication: PRODUCT USED FOR UNKNOWN INDICATION
     Dosage: NOT PROVIDED
     Route: 042
     Dates: start: 20171102

REACTIONS (5)
  - Wrong technique in product usage process [Recovered/Resolved]
  - Necrosis [Recovering/Resolving]
  - Injection site urticaria [Recovered/Resolved]
  - Infusion site pain [Recovering/Resolving]
  - Infusion site pruritus [Recovering/Resolving]

NARRATIVE: CASE EVENT DATE: 20171102
